FAERS Safety Report 26208643 (Version 1)
Quarter: 2025Q4

REPORT INFORMATION
  Report Type: Spontaneous
  Country: US (occurrence: US)
  Receive Date: 20251229
  Receipt Date: 20251229
  Transmission Date: 20260117
  Serious: No
  Sender: GALPHARM INTERNATIONAL
  Company Number: US-PERRIGO-25US007347

PATIENT
  Sex: Female

DRUGS (1)
  1. TIOCONAZOLE [Suspect]
     Active Substance: TIOCONAZOLE
     Indication: Vulvovaginal mycotic infection
     Dosage: 300 MG, SINGLE
     Route: 067
     Dates: start: 202505, end: 202505

REACTIONS (2)
  - Vulvovaginal discomfort [Recovering/Resolving]
  - Vulvovaginal swelling [Recovering/Resolving]

NARRATIVE: CASE EVENT DATE: 20250501
